FAERS Safety Report 5376192-7 (Version None)
Quarter: 2007Q3

REPORT INFORMATION
  Report Type: 
  Country: None (occurrence: None)
  Receive Date: 20070702
  Receipt Date: 20070626
  Transmission Date: 20080115
  Serious: Yes (Other)
  Sender: FDA-Public Use
  Company Number: B0477324A

PATIENT
  Sex: Male

DRUGS (1)
  1. NICABATE CQ 2MG LOZENGE [Suspect]
     Dosage: 2MG FIFTEEN TIMES PER DAY
     Route: 002
     Dates: start: 20030101

REACTIONS (1)
  - DEPENDENCE [None]
